FAERS Safety Report 8807593 (Version 1)
Quarter: 2012Q4

REPORT INFORMATION
  Report Type: 
  Country: US (occurrence: US)
  Receive Date: 20120925
  Receipt Date: 20120925
  Transmission Date: 20130627
  Serious: No
  Sender: FDA-Public Use
  Company Number: US-B.I. PHARMACEUTICALS,INC./RIDGEFIELD-2012-BP-23049BP

PATIENT
  Age: 61 Year
  Sex: Male
  Weight: 118 kg

DRUGS (11)
  1. SPIRIVA [Suspect]
     Indication: CHRONIC OBSTRUCTIVE PULMONARY DISEASE
     Dosage: 18 mcg
     Route: 055
     Dates: start: 2010
  2. SPIRIVA [Suspect]
     Route: 048
     Dates: start: 20120919, end: 20120919
  3. SYNTHROID [Concomitant]
     Indication: HYPOTHYROIDISM
     Dosage: 0.175 mcg
     Route: 048
     Dates: start: 1992
  4. TERBINAFINE  HYDROCHLORIDE [Concomitant]
     Indication: ONYCHOMYCOSIS
     Dosage: 250 mg
     Route: 048
     Dates: start: 201206
  5. ASPIRIN [Concomitant]
     Indication: BLOOD CHOLESTEROL INCREASED
     Dosage: 81 mg
     Route: 048
     Dates: start: 2002
  6. ASPIRIN [Concomitant]
     Indication: CARDIAC DISORDER
  7. RANITIDINE [Concomitant]
     Indication: GASTROOESOPHAGEAL REFLUX DISEASE
     Dosage: 150 mg
     Route: 048
     Dates: start: 2006
  8. LORATADINE [Concomitant]
     Indication: NASAL DECONGESTION THERAPY
     Dosage: 10 mg
     Route: 048
     Dates: start: 20120909, end: 20120919
  9. FLUTICASONE PROPIONATE [Concomitant]
     Indication: NASAL CONGESTION
     Dates: start: 20120904
  10. ADVAIR [Concomitant]
     Indication: CHRONIC OBSTRUCTIVE PULMONARY DISEASE
     Route: 055
     Dates: start: 2007
  11. ALBUTEROL RESCUE INHALER [Concomitant]
     Indication: CHRONIC OBSTRUCTIVE PULMONARY DISEASE
     Route: 055
     Dates: start: 2011

REACTIONS (1)
  - Incorrect route of drug administration [Recovered/Resolved]
